FAERS Safety Report 15313881 (Version 3)
Quarter: 2018Q3

REPORT INFORMATION
  Report Type: Spontaneous
  Country: US (occurrence: US)
  Receive Date: 20180824
  Receipt Date: 20180918
  Transmission Date: 20181010
  Serious: Yes (Hospitalization)
  Sender: FDA-Public Use
  Company Number: US-HORIZON-RAV-0138-2018

PATIENT
  Age: 36 Year
  Sex: Male

DRUGS (1)
  1. RAVICTI [Suspect]
     Active Substance: GLYCEROL PHENYLBUTYRATE
     Indication: ORNITHINE TRANSCARBAMOYLASE DEFICIENCY
     Dosage: 6 ML TID
     Route: 048

REACTIONS (2)
  - Hyperammonaemia [Unknown]
  - Gout [Unknown]

NARRATIVE: CASE EVENT DATE: 201808
